FAERS Safety Report 20824691 (Version 1)
Quarter: 2022Q2

REPORT INFORMATION
  Report Type: Report from Study
  Country: CA (occurrence: CA)
  Receive Date: 20220513
  Receipt Date: 20220513
  Transmission Date: 20220721
  Serious: Yes (Hospitalization)
  Sender: FDA-Public Use
  Company Number: CA-ABBVIE-21K-028-3733628-00

PATIENT
  Age: 79 Year
  Sex: Female

DRUGS (1)
  1. HUMIRA [Suspect]
     Active Substance: ADALIMUMAB
     Indication: Crohn^s disease
     Route: 058
     Dates: start: 20190625

REACTIONS (12)
  - Mesenteric artery stenosis [Not Recovered/Not Resolved]
  - Confusional state [Unknown]
  - Unevaluable event [Unknown]
  - Stenosis [Unknown]
  - Liver function test increased [Recovered/Resolved]
  - Ovarian cyst [Unknown]
  - Leukocytosis [Recovered/Resolved]
  - Crohn^s disease [Not Recovered/Not Resolved]
  - Urinary tract candidiasis [Recovered/Resolved]
  - Vulvovaginal candidiasis [Recovered/Resolved]
  - Skin candida [Unknown]
  - Erythema [Recovered/Resolved]

NARRATIVE: CASE EVENT DATE: 20210101
